FAERS Safety Report 9712897 (Version 2)
Quarter: 2014Q1

REPORT INFORMATION
  Report Type: Spontaneous
  Country: US (occurrence: US)
  Receive Date: 20131126
  Receipt Date: 20140110
  Transmission Date: 20141002
  Serious: No
  Sender: FDA-Public Use
  Company Number: US-009507513-1311USA008387

PATIENT
  Sex: Female
  Weight: 63.49 kg

DRUGS (3)
  1. PROVENTIL [Suspect]
     Indication: ASTHMA
     Dosage: AS NEEDED
     Route: 055
     Dates: start: 201311
  2. PROVENTIL [Suspect]
     Indication: BRONCHITIS
  3. ATIVAN [Concomitant]

REACTIONS (2)
  - Dyspnoea [Not Recovered/Not Resolved]
  - Product quality issue [Unknown]
